FAERS Safety Report 8746388 (Version 7)
Quarter: 2013Q2

REPORT INFORMATION
  Report Type: Spontaneous
  Country: US (occurrence: US)
  Receive Date: 20120827
  Receipt Date: 20130621
  Transmission Date: 20140414
  Serious: Yes (Other)
  Sender: FDA-Public Use
  Company Number: US-009507513-1208USA003427

PATIENT
  Sex: Female
  Weight: 68.27 kg

DRUGS (4)
  1. VICTRELIS [Suspect]
     Indication: HEPATITIS C
     Dosage: UNK
     Route: 048
     Dates: start: 20120716
  2. REBETOL [Suspect]
     Indication: HEPATITIS C
     Dosage: 1000 MG, QD
     Route: 048
     Dates: start: 20120618
  3. REBETOL [Suspect]
     Dosage: 600 MG, QD
  4. PEGASYS [Suspect]
     Indication: HEPATITIS C
     Dosage: UNK
     Dates: start: 20120618

REACTIONS (23)
  - Pneumonia [Unknown]
  - Anaemia [Unknown]
  - Arthritis [Unknown]
  - Full blood count decreased [Unknown]
  - Weight increased [Unknown]
  - Dysgeusia [Unknown]
  - Stomatitis [Unknown]
  - Weight increased [Unknown]
  - Weight increased [Unknown]
  - Pyrexia [Unknown]
  - Cough [Unknown]
  - Rash [Unknown]
  - Cough [Unknown]
  - Decreased appetite [Unknown]
  - Dry mouth [Unknown]
  - Tongue disorder [Unknown]
  - Fatigue [Unknown]
  - Anaemia [Unknown]
  - Haemoglobin decreased [Unknown]
  - Leukopenia [Unknown]
  - White blood cell count decreased [Unknown]
  - Disturbance in attention [Unknown]
  - Oedema peripheral [Unknown]
